FAERS Safety Report 17183857 (Version 1)
Quarter: 2019Q4

REPORT INFORMATION
  Report Type: Spontaneous
  Country: FR (occurrence: FR)
  Receive Date: 20191220
  Receipt Date: 20191220
  Transmission Date: 20200122
  Serious: Yes (Hospitalization)
  Sender: FDA-Public Use
  Company Number: NVSC2019FR071575

PATIENT
  Age: 62 Year
  Sex: Male

DRUGS (1)
  1. TEGRETOL [Suspect]
     Active Substance: CARBAMAZEPINE
     Indication: EPILEPSY
     Dosage: UNK
     Route: 048

REACTIONS (5)
  - Food refusal [Recovered/Resolved]
  - Limb discomfort [Recovered/Resolved]
  - Balance disorder [Recovered/Resolved]
  - Fall [Recovered/Resolved]
  - Disorientation [Recovered/Resolved]
